FAERS Safety Report 6105898-7 (Version None)
Quarter: 2009Q1

REPORT INFORMATION
  Report Type: 
  Country: None (occurrence: None)
  Receive Date: 20090227
  Receipt Date: 20090319
  Transmission Date: 20090719
  Serious: Yes (Other)
  Sender: FDA-Public Use
  Company Number: 168993USA

PATIENT
  Sex: Male

DRUGS (3)
  1. FLUOROURACIL [Suspect]
     Indication: COLON CANCER METASTATIC
  2. FOLINIC ACID [Suspect]
     Indication: COLON CANCER METASTATIC
  3. OXALIPLATIN [Suspect]
     Indication: COLON CANCER METASTATIC

REACTIONS (6)
  - DEHYDRATION [None]
  - DIARRHOEA HAEMORRHAGIC [None]
  - MALAISE [None]
  - QUALITY OF LIFE DECREASED [None]
  - WEIGHT [None]
  - WEIGHT DECREASED [None]
